FAERS Safety Report 9376735 (Version 1)
Quarter: 2013Q2

REPORT INFORMATION
  Report Type: Spontaneous
  Country: US (occurrence: None)
  Receive Date: 20130628
  Receipt Date: 20130628
  Transmission Date: 20140414
  Serious: Yes (Other)
  Sender: FDA-Public Use
  Company Number: None

PATIENT
  Sex: 0

DRUGS (1)
  1. DIPRIVAN [Suspect]
     Indication: SEDATION
     Dates: start: 20130627, end: 20130627

REACTIONS (2)
  - Product quality issue [None]
  - Product measured potency issue [None]
